FAERS Safety Report 9439600 (Version 1)
Quarter: 2013Q3

REPORT INFORMATION
  Report Type: Spontaneous
  Country: GB (occurrence: GB)
  Receive Date: 20130805
  Receipt Date: 20130805
  Transmission Date: 20140515
  Serious: Yes (Other)
  Sender: FDA-Public Use
  Company Number: GB-SP-2013-08080

PATIENT
  Age: 75 Year
  Sex: Male

DRUGS (1)
  1. BCG THERAPEUTICS [Suspect]
     Indication: BLADDER CANCER
     Dosage: 6 WEEK COURSE SECOND COURSE ONE YEAR
     Route: 043

REACTIONS (3)
  - Orchitis [Unknown]
  - Scrotal pain [Unknown]
  - Scrotal swelling [Unknown]
